FAERS Safety Report 5716837-2 (Version None)
Quarter: 2008Q2

REPORT INFORMATION
  Report Type: 
  Country: None (occurrence: None)
  Receive Date: 20080424
  Receipt Date: 20070820
  Transmission Date: 20081010
  Serious: No
  Sender: FDA-Public Use
  Company Number: US-BAYER-200712822BWH

PATIENT
  Age: 63 Year
  Sex: Male

DRUGS (8)
  1. LEVITRA [Suspect]
     Indication: ERECTILE DYSFUNCTION
     Dosage: AS USED: 10 MG  UNIT DOSE: 10 MG
     Route: 048
     Dates: start: 20050101
  2. PROSCAR [Concomitant]
     Indication: PROSTATE EXAMINATION ABNORMAL
  3. NEXIUM [Concomitant]
     Indication: GASTROOESOPHAGEAL REFLUX DISEASE
  4. VYTORIN [Concomitant]
     Indication: BLOOD CHOLESTEROL INCREASED
  5. XALATAN [Concomitant]
     Indication: GLAUCOMA
  6. ACYCLOVIR [Concomitant]
     Indication: HERPES VIRUS INFECTION
  7. XANAX [Concomitant]
     Indication: SEDATIVE THERAPY
  8. ASPIRIN [Concomitant]

REACTIONS (2)
  - CHEST PAIN [None]
  - HEADACHE [None]
